FAERS Safety Report 4844700-8 (Version None)
Quarter: 2005Q4

REPORT INFORMATION
  Report Type: 
  Country: None (occurrence: None)
  Receive Date: 20051125
  Receipt Date: 20051111
  Transmission Date: 20060501
  Serious: Yes (Life-Threatening)
  Sender: FDA-Public Use
  Company Number: 2005155870

PATIENT
  Age: 73 Year
  Sex: Male

DRUGS (5)
  1. VFEND [Suspect]
     Indication: PNEUMONIA ASPERGILLUS
     Dosage: SEE IMAGE
     Route: 042
     Dates: start: 20051031, end: 20051031
  2. VFEND [Suspect]
     Indication: PNEUMONIA ASPERGILLUS
     Dosage: SEE IMAGE
     Route: 042
     Dates: start: 20051101
  3. MEROPENEM (MEROPENEM) [Concomitant]
  4. VANCOMYCIN [Concomitant]
  5. ANTIBIOTICS (ANTIBIOTICS) [Concomitant]

REACTIONS (1)
  - INTRAVENTRICULAR HAEMORRHAGE [None]
